FAERS Safety Report 9697032 (Version 4)
Quarter: 2014Q1

REPORT INFORMATION
  Report Type: Spontaneous
  Country: US (occurrence: US)
  Receive Date: 20131120
  Receipt Date: 20140224
  Transmission Date: 20141002
  Serious: Yes (Life-Threatening, Hospitalization)
  Sender: FDA-Public Use
  Company Number: US-ROCHE-1306323

PATIENT
  Age: 46 Year
  Sex: Female

DRUGS (15)
  1. PEGASYS [Suspect]
     Indication: HEPATITIS C
     Route: 058
     Dates: start: 20131108, end: 20131111
  2. RIBAVIRIN [Suspect]
     Indication: HEPATITIS C
     Route: 048
     Dates: start: 20131108, end: 20131111
  3. RIBAVIRIN [Suspect]
     Route: 048
     Dates: start: 20131108, end: 20131111
  4. TELAPREVIR [Suspect]
     Indication: HEPATITIS C
     Route: 048
     Dates: start: 20131108, end: 20131111
  5. ASPIRIN [Concomitant]
  6. OMEPRAZOLE [Concomitant]
  7. WELLBUTRIN [Concomitant]
     Indication: DEPRESSION
  8. FISH OIL [Concomitant]
  9. INSULIN [Concomitant]
  10. HUMULIN INSULIN [Concomitant]
  11. LEVOTHYROXINE [Concomitant]
  12. LISINOPRIL [Concomitant]
  13. METAXALONE [Concomitant]
  14. SIMVASTATIN [Concomitant]
  15. TRAZODONE [Concomitant]

REACTIONS (11)
  - Lactic acidosis [Recovered/Resolved]
  - Product quality issue [Unknown]
  - Poor quality drug administered [Unknown]
  - Tremor [Not Recovered/Not Resolved]
  - Nausea [Unknown]
  - Vomiting [Unknown]
  - Dyspnoea [Unknown]
  - Serotonin syndrome [Unknown]
  - Pain [Not Recovered/Not Resolved]
  - Back pain [Not Recovered/Not Resolved]
  - Aggression [Unknown]
